FAERS Safety Report 5261892-X (Version None)
Quarter: 2007Q1

REPORT INFORMATION
  Report Type: 
  Country: None (occurrence: None)
  Receive Date: 20070310
  Receipt Date: 20070228
  Transmission Date: 20070707
  Serious: Yes (Other)
  Sender: FDA-Public Use
  Company Number: 2006UW07819

PATIENT
  Sex: Female
  Weight: 100.5 kg

DRUGS (5)
  1. SEROQUEL [Suspect]
     Indication: DEPRESSION
     Dosage: 25MG-100MG
     Route: 048
     Dates: start: 19970701, end: 20051001
  2. SEROQUEL [Suspect]
     Indication: ANXIETY
     Dosage: 25MG-100MG
     Route: 048
     Dates: start: 19970701, end: 20051001
  3. HALDOL [Concomitant]
     Dates: start: 19760101, end: 19800101
  4. NAVANE [Concomitant]
  5. STELAZINE [Concomitant]

REACTIONS (2)
  - DIABETES MELLITUS NON-INSULIN-DEPENDENT [None]
  - TARDIVE DYSKINESIA [None]
